FAERS Safety Report 5700350-2 (Version None)
Quarter: 2008Q2

REPORT INFORMATION
  Report Type: 
  Country: None (occurrence: None)
  Receive Date: 20080410
  Receipt Date: 20080328
  Transmission Date: 20081010
  Serious: Yes (Hospitalization)
  Sender: FDA-Public Use
  Company Number: US-PFIZER INC-2008018409

PATIENT
  Sex: Female
  Weight: 40 kg

DRUGS (3)
  1. SU-011,248 [Suspect]
     Indication: MALIGNANT MELANOMA
     Route: 048
     Dates: start: 20071114, end: 20080218
  2. OXYCODONE HCL [Concomitant]
     Dosage: FREQ:AS NEEDED
     Route: 048
  3. FOSAMAX [Concomitant]
     Route: 048

REACTIONS (2)
  - CONVULSION [None]
  - SPEECH DISORDER [None]
